FAERS Safety Report 10932122 (Version 1)
Quarter: 2015Q1

REPORT INFORMATION
  Report Type: Spontaneous
  Country: US (occurrence: None)
  Receive Date: 20150225
  Receipt Date: 20150225
  Transmission Date: 20150721
  Serious: Yes (Other)
  Sender: FDA-Public Use
  Company Number: 2014-US0007180

PATIENT
  Age: 44 Year
  Sex: Male

DRUGS (8)
  1. PRIALT [Suspect]
     Active Substance: ZICONOTIDE ACETATE
     Indication: PAIN
     Route: 037
  2. PRIALT [Suspect]
     Active Substance: ZICONOTIDE ACETATE
     Indication: LUMBAR RADICULOPATHY
     Route: 037
  3. HYDROMORPHONE HCL [Suspect]
     Active Substance: HYDROMORPHONE HYDROCHLORIDE
     Indication: PAIN
     Route: 037
  4. BUPIVACAINE HYDROCHLORIDE. [Suspect]
     Active Substance: BUPIVACAINE HYDROCHLORIDE
     Indication: LUMBAR RADICULOPATHY
     Route: 037
  5. BUPIVACAINE HYDROCHLORIDE. [Suspect]
     Active Substance: BUPIVACAINE HYDROCHLORIDE
     Indication: PAIN
     Route: 037
  6. CLONIDINE. [Suspect]
     Active Substance: CLONIDINE
     Indication: LUMBAR RADICULOPATHY
     Dosage: 4.515 UG, QH, INTRATHECAL
     Route: 037
  7. CLONIDINE. [Suspect]
     Active Substance: CLONIDINE
     Indication: PAIN
     Dosage: 4.515 UG, QH, INTRATHECAL
     Route: 037
  8. HYDROMORPHONE HCL [Suspect]
     Active Substance: HYDROMORPHONE HYDROCHLORIDE
     Indication: LUMBAR RADICULOPATHY
     Route: 037

REACTIONS (2)
  - Device issue [None]
  - Meningitis [None]

NARRATIVE: CASE EVENT DATE: 201304
